FAERS Safety Report 7899780 (Version 4)
Quarter: 2014Q2

REPORT INFORMATION
  Report Type: Report from Study
  Country: US (occurrence: US)
  Receive Date: 20110414
  Receipt Date: 20140617
  Transmission Date: 20141212
  Serious: Yes (Other)
  Sender: FDA-Public Use
  Company Number: US-ROCHE-770319

PATIENT
  Age: 25 Year
  Sex: Female

DRUGS (4)
  1. PEG-INTERFERON ALFA 2A [Suspect]
     Indication: PRODUCT USED FOR UNKNOWN INDICATION
     Route: 065
     Dates: start: 20090716, end: 20100507
  2. RIBAVIRIN [Suspect]
     Indication: PRODUCT USED FOR UNKNOWN INDICATION
     Route: 065
     Dates: start: 20090716, end: 20100514
  3. PRILOSEC [Concomitant]
     Indication: GASTROOESOPHAGEAL REFLUX DISEASE
     Route: 065
  4. ZYRTEC [Concomitant]
     Indication: SEASONAL ALLERGY
     Route: 065

REACTIONS (3)
  - Umbilical cord vascular disorder [Unknown]
  - Jaundice [Recovered/Resolved]
  - Haemoglobin decreased [Recovered/Resolved]
